FAERS Safety Report 7626092-4 (Version None)
Quarter: 2011Q3

REPORT INFORMATION
  Report Type: 
  Country: None (occurrence: None)
  Receive Date: 20110713
  Receipt Date: 20110628
  Transmission Date: 20111222
  Serious: Yes (Death)
  Sender: FDA-Public Use
  Company Number: AUR-APL-2011-03843

PATIENT
  Age: 32 Year
  Sex: Male

DRUGS (8)
  1. SERTRALINE HYDROCHLORIDE [Suspect]
     Indication: PRODUCT USED FOR UNKNOWN INDICATION
     Dosage: ORAL
     Route: 048
     Dates: start: 20070101
  2. LITHIUM CARBONATE [Suspect]
     Indication: PRODUCT USED FOR UNKNOWN INDICATION
     Dosage: ORAL
     Route: 048
     Dates: start: 20070101
  3. MARIJUANA (CANNABIS SATIVA) [Suspect]
     Indication: PRODUCT USED FOR UNKNOWN INDICATION
     Dosage: ORAL
     Route: 048
     Dates: start: 20070101
  4. DIPHENHYDRAMINE HCL [Suspect]
     Indication: PRODUCT USED FOR UNKNOWN INDICATION
     Dosage: ORAL
     Route: 048
     Dates: start: 20070101
  5. CLONAZEPAM [Suspect]
     Indication: PRODUCT USED FOR UNKNOWN INDICATION
     Dosage: ORAL
     Route: 048
     Dates: start: 20070101
  6. QUETIAPINE FUMARATE [Suspect]
     Indication: PRODUCT USED FOR UNKNOWN INDICATION
     Dosage: ORAL
     Route: 048
     Dates: start: 20070101
  7. METHADONE HCL [Suspect]
     Indication: PRODUCT USED FOR UNKNOWN INDICATION
     Dosage: ORAL
     Route: 048
     Dates: start: 20070101
  8. ACETAMINOPHEN/HYDROCODONE BITARTRATE [Suspect]
     Indication: PRODUCT USED FOR UNKNOWN INDICATION
     Dosage: ORAL
     Route: 048
     Dates: start: 20070101

REACTIONS (5)
  - WRONG TECHNIQUE IN DRUG USAGE PROCESS [None]
  - COMPLETED SUICIDE [None]
  - RESPIRATORY ARREST [None]
  - DRUG ABUSE [None]
  - CARDIAC ARREST [None]
